FAERS Safety Report 24714416 (Version 2)
Quarter: 2024Q4

REPORT INFORMATION
  Report Type: Report from Study
  Country: US (occurrence: US)
  Receive Date: 20241209
  Receipt Date: 20241226
  Transmission Date: 20250115
  Serious: Yes (Other)
  Sender: ABBVIE
  Company Number: US-ABBVIE-6035639

PATIENT
  Age: 55 Year
  Sex: Female

DRUGS (1)
  1. SKYRIZI [Suspect]
     Active Substance: RISANKIZUMAB-RZAA
     Indication: Product used for unknown indication
     Route: 058
     Dates: start: 202310

REACTIONS (3)
  - Knee arthroplasty [Not Recovered/Not Resolved]
  - Osteoarthritis [Unknown]
  - Meniscus injury [Unknown]

NARRATIVE: CASE EVENT DATE: 20241202
